FAERS Safety Report 17818644 (Version 3)
Quarter: 2020Q2

REPORT INFORMATION
  Report Type: Spontaneous
  Country: US (occurrence: US)
  Receive Date: 20200522
  Receipt Date: 20200528
  Transmission Date: 20200714
  Serious: Yes (Death, Life-Threatening, Hospitalization, Other)
  Sender: FDA-Public Use
  Company Number: US-SEATTLE GENETICS-2020SGN02164

PATIENT
  Age: 51 Year
  Sex: Male
  Weight: 114 kg

DRUGS (10)
  1. ACYCLOVIR                          /00587301/ [Concomitant]
     Active Substance: ACYCLOVIR
  2. ADCETRIS [Suspect]
     Active Substance: BRENTUXIMAB VEDOTIN
     Indication: HODGKIN^S DISEASE
     Dosage: 180 MG, SINGLE
     Route: 042
     Dates: start: 20200429, end: 20200429
  3. MIRALAX [Concomitant]
     Active Substance: POLYETHYLENE GLYCOL 3350
  4. SENNA                              /00142201/ [Concomitant]
     Active Substance: SENNA LEAF
  5. ACETAMINOPHEN W/HYDROCODONE [Concomitant]
     Active Substance: ACETAMINOPHEN\HYDROCODONE
  6. LISINOPRIL. [Concomitant]
     Active Substance: LISINOPRIL
  7. ELIQUIS [Concomitant]
     Active Substance: APIXABAN
     Indication: DEEP VEIN THROMBOSIS
  8. ZOFRAN [Concomitant]
     Active Substance: ONDANSETRON HYDROCHLORIDE
  9. ATENOLOL. [Concomitant]
     Active Substance: ATENOLOL
  10. COMPAZINE                          /00013302/ [Concomitant]
     Active Substance: PROCHLORPERAZINE EDISYLATE

REACTIONS (12)
  - Nephrolithiasis [Unknown]
  - Diabetic ketoacidosis [Fatal]
  - Lactic acidosis [Fatal]
  - Blood bilirubin increased [Unknown]
  - Acute kidney injury [Unknown]
  - Sepsis [Unknown]
  - Ileus [Unknown]
  - Multiple organ dysfunction syndrome [Fatal]
  - Tachycardia [Unknown]
  - Cardiogenic shock [Unknown]
  - Pneumonia [Unknown]
  - Nephropathy [Unknown]

NARRATIVE: CASE EVENT DATE: 2020
